FAERS Safety Report 16255843 (Version 1)
Quarter: 2019Q2

REPORT INFORMATION
  Report Type: Spontaneous
  Country: US (occurrence: US)
  Receive Date: 20190430
  Receipt Date: 20190430
  Transmission Date: 20190711
  Serious: No
  Sender: FDA-Public Use
  Company Number: US-PFIZER INC-2019175477

PATIENT
  Age: 57 Year
  Sex: Female
  Weight: 121.56 kg

DRUGS (1)
  1. LYRICA [Suspect]
     Active Substance: PREGABALIN
     Indication: FIBROMYALGIA
     Dosage: 600 MG, DAILY (ONE 200 MG CAPSULE IN MORNING WITH MORNING PILLS AND TWO 200 MG CAPSULES AT NIGHT)

REACTIONS (5)
  - Malaise [Unknown]
  - Pain [Not Recovered/Not Resolved]
  - Abdominal discomfort [Unknown]
  - Influenza like illness [Unknown]
  - Condition aggravated [Unknown]

NARRATIVE: CASE EVENT DATE: 20190419
